FAERS Safety Report 5417221-1 (Version None)
Quarter: 2007Q3

REPORT INFORMATION
  Report Type: 
  Country: None (occurrence: None)
  Receive Date: 20070816
  Receipt Date: 20070807
  Transmission Date: 20080115
  Serious: No
  Sender: FDA-Public Use
  Company Number: JP-SANOFI-SYNTHELABO-A01200700758

PATIENT
  Sex: Male
  Weight: 65 kg

DRUGS (3)
  1. PLETAL [Concomitant]
     Indication: DRUG USE FOR UNKNOWN INDICATION
     Route: 048
     Dates: start: 20051003, end: 20061217
  2. PLAVIX [Suspect]
     Indication: HEMIPLEGIA
     Route: 048
     Dates: start: 20061218, end: 20070120
  3. CANDESARTAN CILEXETIL [Concomitant]
     Indication: HYPERTENSION
     Route: 048
     Dates: start: 20051003

REACTIONS (3)
  - CONDITION AGGRAVATED [None]
  - HYPOAESTHESIA [None]
  - NERVOUSNESS [None]
